FAERS Safety Report 25984131 (Version 1)
Quarter: 2025Q4

REPORT INFORMATION
  Report Type: Spontaneous
  Country: US (occurrence: US)
  Receive Date: 20251031
  Receipt Date: 20251031
  Transmission Date: 20260118
  Serious: No
  Sender: BLUEPRINT MEDICINES CORPORATION
  Company Number: US-Blueprint Medicines Corporation-2025-AER-02324

PATIENT
  Age: 74 Year
  Sex: Female

DRUGS (3)
  1. AYVAKIT [Suspect]
     Active Substance: AVAPRITINIB
     Indication: Sarcoma uterus
     Route: 065
     Dates: start: 202406
  2. AYVAKIT [Suspect]
     Active Substance: AVAPRITINIB
     Route: 065
     Dates: start: 202504
  3. AYVAKIT [Suspect]
     Active Substance: AVAPRITINIB
     Route: 065
     Dates: start: 202407

REACTIONS (7)
  - Fatigue [Recovering/Resolving]
  - Memory impairment [Recovering/Resolving]
  - Lacrimation increased [Unknown]
  - Face oedema [Unknown]
  - Nausea [Unknown]
  - Hair colour changes [Unknown]
  - Off label use [Unknown]
